FAERS Safety Report 18783123 (Version 1)
Quarter: 2021Q1

REPORT INFORMATION
  Report Type: Spontaneous
  Country: NL (occurrence: NL)
  Receive Date: 20210125
  Receipt Date: 20210125
  Transmission Date: 20210419
  Serious: Yes (Other)
  Sender: FDA-Public Use
  Company Number: NL-JNJFOC-20210130613

PATIENT
  Sex: Female
  Weight: 120 kg

DRUGS (6)
  1. TOPIRAMATE. [Suspect]
     Active Substance: TOPIRAMATE
     Indication: POST-TRAUMATIC STRESS DISORDER
  2. TOPIRAMATE. [Suspect]
     Active Substance: TOPIRAMATE
     Indication: DISSOCIATIVE DISORDER
     Route: 048
     Dates: start: 2018
  3. CLOMIPRAMINE [Suspect]
     Active Substance: CLOMIPRAMINE
     Indication: DEPRESSION
     Route: 065
     Dates: start: 2013
  4. CLOMIPRAMINE [Suspect]
     Active Substance: CLOMIPRAMINE
     Indication: POST-TRAUMATIC STRESS DISORDER
  5. TOPIRAMATE. [Suspect]
     Active Substance: TOPIRAMATE
     Indication: POST-TRAUMATIC STRESS DISORDER
     Route: 048
     Dates: start: 2018
  6. TOPIRAMATE. [Suspect]
     Active Substance: TOPIRAMATE
     Indication: DISSOCIATIVE DISORDER

REACTIONS (9)
  - Suicide attempt [Unknown]
  - Headache [Unknown]
  - Off label use [Unknown]
  - Weight increased [Unknown]
  - Liver function test increased [Unknown]
  - Paraesthesia [Not Recovered/Not Resolved]
  - Face oedema [Unknown]
  - Acromegaly [Unknown]
  - Product use in unapproved indication [Unknown]

NARRATIVE: CASE EVENT DATE: 2018
